FAERS Safety Report 24662638 (Version 1)
Quarter: 2024Q4

REPORT INFORMATION
  Report Type: Spontaneous
  Country: US (occurrence: US)
  Receive Date: 20241126
  Receipt Date: 20241126
  Transmission Date: 20250115
  Serious: Yes (Hospitalization, Other)
  Sender: ALKEM
  Company Number: US-ALKEM LABORATORIES LIMITED-US-ALKEM-2024-24762

PATIENT
  Age: 70 Year
  Sex: Male
  Weight: 64.399 kg

DRUGS (1)
  1. MYCOPHENOLATE MOFETIL [Suspect]
     Active Substance: MYCOPHENOLATE MOFETIL
     Indication: Immunosuppressant drug therapy
     Dosage: 360 MILLIGRAM
     Route: 065
     Dates: start: 2023, end: 202409

REACTIONS (10)
  - Rhinorrhoea [Unknown]
  - Eye pruritus [Unknown]
  - Nasopharyngitis [Unknown]
  - Pain [Unknown]
  - Vomiting [Unknown]
  - Dizziness [Unknown]
  - Diarrhoea [Unknown]
  - Nausea [Unknown]
  - Colitis [Unknown]
  - Illness [Unknown]

NARRATIVE: CASE EVENT DATE: 20240801
